FAERS Safety Report 4426889-8 (Version None)
Quarter: 2004Q3

REPORT INFORMATION
  Report Type: 
  Country: None (occurrence: None)
  Receive Date: 20040811
  Receipt Date: 20040720
  Transmission Date: 20050211
  Serious: Yes (Life-Threatening)
  Sender: FDA-Public Use
  Company Number: J200403176

PATIENT
  Age: 44 Year
  Sex: Female

DRUGS (4)
  1. (MYSLEE) ZOLPIDEM TABLET 10MG [Suspect]
     Indication: INSOMNIA
     Dosage: 10MG   PO
     Route: 048
     Dates: start: 20010101, end: 20040707
  2. PAXIL(PAROXETINE HYDROCHLORIDE HYDRATE) [Concomitant]
  3. EURODIN (ESTAZOLAM) [Concomitant]
  4. SILECE (FLUNITRAZEPAM) [Concomitant]

REACTIONS (1)
  - HEPATITIS ACUTE [None]
